FAERS Safety Report 10609449 (Version 2)
Quarter: 2014Q4

REPORT INFORMATION
  Report Type: Spontaneous
  Country: VN (occurrence: VN)
  Receive Date: 20141126
  Receipt Date: 20141205
  Transmission Date: 20150529
  Serious: Yes (Other)
  Sender: FDA-Public Use
  Company Number: VN-ROCHE-1495560

PATIENT

DRUGS (1)
  1. GANCICLOVIR. [Suspect]
     Active Substance: GANCICLOVIR
     Indication: CYTOMEGALOVIRUS INFECTION
     Route: 065

REACTIONS (5)
  - Cytomegalovirus infection [Unknown]
  - Thrombocytopenia [Recovered/Resolved]
  - Hepatic enzyme increased [Recovered/Resolved]
  - Neutropenia [Recovered/Resolved]
  - Renal failure [Recovered/Resolved]
